FAERS Safety Report 18905119 (Version 4)
Quarter: 2021Q1

REPORT INFORMATION
  Report Type: Spontaneous
  Country: IT (occurrence: IT)
  Receive Date: 20210217
  Receipt Date: 20210304
  Transmission Date: 20210420
  Serious: Yes (Death, Other)
  Sender: FDA-Public Use
  Company Number: IT-GILEAD-2020-0510260

PATIENT
  Age: 64 Year
  Sex: Female
  Weight: 55 kg

DRUGS (14)
  1. MEROPENEM. [Concomitant]
     Active Substance: MEROPENEM
     Dosage: 1 G X3/DIE
     Route: 042
  2. MYCOSTATIN [Concomitant]
     Active Substance: NYSTATIN
     Dosage: UNK, X 3/DIE
     Route: 042
  3. ACICLOVIR [Concomitant]
     Active Substance: ACYCLOVIR
     Dosage: 800 MG X2/DIE X OS CP
  4. KCL [Concomitant]
     Active Substance: POTASSIUM CHLORIDE
     Dosage: 600 MG, 2 CP X2/DIE X OS
  5. POSACONAZOL [Concomitant]
     Active Substance: POSACONAZOLE
     Dosage: 300 MG /DIEX OS CP
  6. TRANEX [Concomitant]
     Active Substance: TRANEXAMIC ACID
     Dosage: 1 FL X 3/DIE
     Route: 042
  7. MAGNESIUM SULFATE. [Concomitant]
     Active Substance: MAGNESIUM SULFATE
     Dosage: 2 FL/DIE X OS
  8. TEICOPLANINA [Concomitant]
     Active Substance: TEICOPLANIN
     Dosage: 400 MG X2/DIE
     Route: 042
  9. AMLODIPINA [AMLODIPINE] [Concomitant]
     Active Substance: AMLODIPINE BESYLATE
     Dosage: 5 MG 1 CP/DIE
  10. AMIKACINA [AMIKACIN] [Concomitant]
     Active Substance: AMIKACIN
     Dosage: 750 MG/DIE
     Route: 042
  11. OMEPRAZOLO [Concomitant]
     Active Substance: OMEPRAZOLE
     Dosage: 20 MG 1 CP/DIE X OS CP
  12. BACTRIM [Concomitant]
     Active Substance: SULFAMETHOXAZOLE\TRIMETHOPRIM
     Dosage: UNK, 1 CP 3 TIMES/WEEK X OS CP
  13. YESCARTA [Suspect]
     Active Substance: AXICABTAGENE CILOLEUCEL
     Indication: DIFFUSE LARGE B-CELL LYMPHOMA
     Dosage: 1 DOSAGE FORM
     Route: 042
     Dates: start: 20210111, end: 20210111
  14. DEURSIL [Concomitant]
     Active Substance: URSODIOL
     Dosage: 450 MG 1 CP/DIE X OS

REACTIONS (3)
  - Immune effector cell-associated neurotoxicity syndrome [Recovered/Resolved]
  - Diffuse large B-cell lymphoma [Fatal]
  - Cytokine release syndrome [Recovered/Resolved]

NARRATIVE: CASE EVENT DATE: 20210121
